FAERS Safety Report 11992368 (Version 2)
Quarter: 2016Q1

REPORT INFORMATION
  Report Type: Spontaneous
  Country: US (occurrence: US)
  Receive Date: 20160203
  Receipt Date: 20160222
  Transmission Date: 20160526
  Serious: No
  Sender: FDA-Public Use
  Company Number: US-JNJFOC-20160109375

PATIENT
  Sex: Female

DRUGS (2)
  1. TYLENOL COLD AND SINUS [Suspect]
     Active Substance: ACETAMINOPHEN\PSEUDOEPHEDRINE
     Route: 065
  2. TYLENOL COLD AND SINUS [Suspect]
     Active Substance: ACETAMINOPHEN\PSEUDOEPHEDRINE
     Indication: PRODUCT USED FOR UNKNOWN INDICATION
     Route: 065

REACTIONS (1)
  - Drug screen positive [Unknown]
